FAERS Safety Report 14923028 (Version 1)
Quarter: 2018Q2

REPORT INFORMATION
  Report Type: Spontaneous
  Country: ZA (occurrence: ZA)
  Receive Date: 20180503
  Receipt Date: 20180503
  Transmission Date: 20180711
  Serious: Yes (Life-Threatening, Disabling, Other)
  Sender: FDA-Public Use
  Company Number: None

PATIENT
  Age: 39 Year
  Sex: Male
  Weight: 73 kg

DRUGS (1)
  1. FINASTERIDE. [Suspect]
     Active Substance: FINASTERIDE
     Indication: ANDROGENETIC ALOPECIA
     Route: 048
     Dates: start: 20170115, end: 20170315

REACTIONS (12)
  - Palpitations [None]
  - Depression [None]
  - Suicidal ideation [None]
  - Quality of life decreased [None]
  - Insomnia [None]
  - Breast pain [None]
  - Loss of libido [None]
  - Erectile dysfunction [None]
  - Hot flush [None]
  - Arthralgia [None]
  - Asthenia [None]
  - Anxiety [None]

NARRATIVE: CASE EVENT DATE: 20170506
